FAERS Safety Report 7637819-X (Version None)
Quarter: 2011Q3

REPORT INFORMATION
  Report Type: 
  Country: None (occurrence: None)
  Receive Date: 20110720
  Receipt Date: 20110708
  Transmission Date: 20111222
  Serious: Yes (Death, Hospitalization, Other)
  Sender: FDA-Public Use
  Company Number: 2010AC000210

PATIENT
  Age: 74 Year
  Sex: Male

DRUGS (11)
  1. FELODIPINE [Concomitant]
  2. SPIRIVA [Concomitant]
  3. DIGOXIN [Suspect]
     Indication: CARDIAC FAILURE CONGESTIVE
     Dosage: 0.125 MG;QD;PO
     Route: 048
     Dates: start: 19971101, end: 20080317
  4. COREG [Concomitant]
  5. ASPIRIN [Concomitant]
  6. LASIX [Concomitant]
  7. AMBIEN [Concomitant]
  8. FIBERCON [Concomitant]
  9. TYLENOL-500 [Concomitant]
  10. LISINOPRIL [Concomitant]
  11. PRILOSEC [Concomitant]

REACTIONS (31)
  - FALL [None]
  - GOUT [None]
  - ASTHENIA [None]
  - DISORIENTATION [None]
  - DRUG INEFFECTIVE [None]
  - LIVEDO RETICULARIS [None]
  - TRICUSPID VALVE INCOMPETENCE [None]
  - CARDIOACTIVE DRUG LEVEL INCREASED [None]
  - RESPIRATORY FAILURE [None]
  - PROSTATIC SPECIFIC ANTIGEN INCREASED [None]
  - CARDIOMEGALY [None]
  - GASTROINTESTINAL HAEMORRHAGE [None]
  - REFUSAL OF TREATMENT BY PATIENT [None]
  - LACERATION [None]
  - RENAL FAILURE ACUTE [None]
  - ATRIOVENTRICULAR BLOCK [None]
  - ATRIAL FIBRILLATION [None]
  - WEIGHT INCREASED [None]
  - ECONOMIC PROBLEM [None]
  - PULSE ABSENT [None]
  - PAIN IN EXTREMITY [None]
  - CARDIAC FAILURE CHRONIC [None]
  - MULTIPLE INJURIES [None]
  - ARTHRALGIA [None]
  - HYPOVOLAEMIA [None]
  - HYPOTENSION [None]
  - ANAEMIA [None]
  - MITRAL VALVE INCOMPETENCE [None]
  - PULMONARY HYPERTENSION [None]
  - GASTRITIS [None]
  - ACUTE PULMONARY OEDEMA [None]
